FAERS Safety Report 13589181 (Version 1)
Quarter: 2017Q2

REPORT INFORMATION
  Report Type: Spontaneous
  Country: CA (occurrence: CA)
  Receive Date: 20170529
  Receipt Date: 20170529
  Transmission Date: 20170830
  Serious: Yes (Other)
  Sender: FDA-Public Use
  Company Number: CA-ROCHE-1939096

PATIENT
  Age: 53 Year
  Sex: Male

DRUGS (6)
  1. APO-PREDNISONE [Suspect]
     Active Substance: PREDNISONE
     Indication: PEMPHIGUS
     Dosage: 5MG TABLET
     Route: 065
  2. ACETAMINOPHEN. [Concomitant]
     Active Substance: ACETAMINOPHEN
     Indication: PREMEDICATION
     Route: 048
  3. METHYLPREDNISOLONE. [Concomitant]
     Active Substance: METHYLPREDNISOLONE
     Indication: PRODUCT USED FOR UNKNOWN INDICATION
     Route: 042
  4. APO-MYCOPHENOLATE [Suspect]
     Active Substance: MYCOPHENOLIC ACID
     Indication: PEMPHIGUS
     Route: 065
  5. DIPHENHYDRAMINE. [Concomitant]
     Active Substance: DIPHENHYDRAMINE
     Indication: PREMEDICATION
     Route: 048
  6. RITUXAN [Suspect]
     Active Substance: RITUXIMAB
     Indication: PEMPHIGUS
     Route: 042

REACTIONS (3)
  - Off label use [Unknown]
  - Pemphigus [Not Recovered/Not Resolved]
  - Weight decreased [Not Recovered/Not Resolved]
